FAERS Safety Report 9159834 (Version 1)
Quarter: 2013Q1

REPORT INFORMATION
  Report Type: Spontaneous
  Country: AT (occurrence: AT)
  Receive Date: 20130313
  Receipt Date: 20130313
  Transmission Date: 20140127
  Serious: Yes (Other)
  Sender: FDA-Public Use
  Company Number: AT-TEVA-390049ISR

PATIENT
  Sex: 0

DRUGS (4)
  1. DOXORUBICIN [Suspect]
     Dosage: 20 MG/M2 DAILY; DAYS 1-3
     Route: 065
  2. ETOPOSIDE [Suspect]
     Dosage: 150 MG/M2 DAILY; DAYS 1-3
     Route: 065
  3. VINCRISTINE [Suspect]
     Dosage: 2  DAILY; DAY 1
     Route: 065
  4. IFOSFAMIDE [Suspect]
     Dosage: 3000 MG/M2 DAILY; DAYS 1-3
     Route: 065

REACTIONS (1)
  - Oligohydramnios [Unknown]
